FAERS Safety Report 16231207 (Version 1)
Quarter: 2019Q2

REPORT INFORMATION
  Report Type: Spontaneous
  Country: FR (occurrence: FR)
  Receive Date: 20190424
  Receipt Date: 20190424
  Transmission Date: 20190711
  Serious: Yes (Life-Threatening)
  Sender: FDA-Public Use
  Company Number: FR-TEVA-2019-FR-1040901

PATIENT
  Age: 14 Year
  Sex: Female
  Weight: 40 kg

DRUGS (2)
  1. AMOXICILLINE ANHYDRE [Suspect]
     Active Substance: AMOXICILLIN
     Indication: POISONING DELIBERATE
     Route: 048
     Dates: start: 20190317, end: 20190317
  2. PARACETAMOL [Suspect]
     Active Substance: ACETAMINOPHEN
     Indication: POISONING DELIBERATE
     Route: 048
     Dates: start: 20190317, end: 20190317

REACTIONS (4)
  - Vomiting [Recovered/Resolved]
  - Renal tubular disorder [Recovering/Resolving]
  - Blood creatinine increased [Recovering/Resolving]
  - Intentional overdose [Recovered/Resolved]

NARRATIVE: CASE EVENT DATE: 20190317
